FAERS Safety Report 20874505 (Version 1)
Quarter: 2022Q2

REPORT INFORMATION
  Report Type: Spontaneous
  Country: MX (occurrence: MX)
  Receive Date: 20220525
  Receipt Date: 20220525
  Transmission Date: 20220721
  Serious: Yes (Other)
  Sender: FDA-Public Use
  Company Number: MX-BIOMARINAP-MX-2022-143380

PATIENT
  Age: 6 Year
  Sex: Female

DRUGS (1)
  1. VIMIZIM [Suspect]
     Active Substance: ELOSULFASE ALFA
     Indication: Product used for unknown indication
     Dosage: UNK, QW
     Route: 042

REACTIONS (3)
  - Blood pressure decreased [Recovering/Resolving]
  - Swelling [Unknown]
  - Fall [Unknown]

NARRATIVE: CASE EVENT DATE: 20220516
